FAERS Safety Report 17461643 (Version 1)
Quarter: 2020Q1

REPORT INFORMATION
  Report Type: Spontaneous
  Country: US (occurrence: US)
  Receive Date: 20200226
  Receipt Date: 20200226
  Transmission Date: 20200409
  Serious: No
  Sender: FDA-Public Use
  Company Number: US-ALKERMES INC.-ALK-2020-000458

PATIENT
  Age: 31 Year
  Sex: Male
  Weight: 63.49 kg

DRUGS (5)
  1. IBUPROFEN. [Concomitant]
     Active Substance: IBUPROFEN
     Indication: PRODUCT USED FOR UNKNOWN INDICATION
     Dosage: UNK
  2. VIVITROL [Suspect]
     Active Substance: NALTREXONE
     Indication: DRUG DEPENDENCE
     Dosage: 380 MG, QMO
     Route: 030
     Dates: start: 202002
  3. OTHER THERAPEUTIC PRODUCTS [Concomitant]
     Active Substance: UNSPECIFIED INGREDIENT
     Indication: PRODUCT USED FOR UNKNOWN INDICATION
     Dosage: UNK
     Dates: start: 202002
  4. TYLENOL [Concomitant]
     Active Substance: ACETAMINOPHEN
     Indication: PRODUCT USED FOR UNKNOWN INDICATION
     Dosage: UNK
  5. VIVITROL [Suspect]
     Active Substance: NALTREXONE
     Dosage: 380 MG, QMO
     Route: 030
     Dates: start: 20191223, end: 20191223

REACTIONS (16)
  - Injection site pain [Unknown]
  - Nausea [Recovered/Resolved]
  - Urticaria [Unknown]
  - Fatigue [Recovered/Resolved]
  - Rhinorrhoea [Unknown]
  - Loss of consciousness [Recovered/Resolved]
  - Ill-defined disorder [Unknown]
  - Dizziness [Recovered/Resolved]
  - Productive cough [Not Recovered/Not Resolved]
  - Wheezing [Unknown]
  - Dyspnoea [Unknown]
  - Influenza [Unknown]
  - Rash [Recovering/Resolving]
  - Injection site reaction [Unknown]
  - Pyrexia [Recovered/Resolved]
  - Hypersensitivity [Unknown]

NARRATIVE: CASE EVENT DATE: 20191223
